FAERS Safety Report 8216052-7 (Version None)
Quarter: 2012Q1

REPORT INFORMATION
  Report Type: 
  Country: None (occurrence: None)
  Receive Date: 20120316
  Receipt Date: 20120309
  Transmission Date: 20120608
  Serious: Yes (Hospitalization)
  Sender: FDA-Public Use
  Company Number: US-BAYER-2012-025080

PATIENT
  Age: 35 Year
  Sex: Female

DRUGS (1)
  1. YASMIN [Suspect]

REACTIONS (2)
  - CEREBROVASCULAR ACCIDENT [None]
  - CAROTID ARTERY OCCLUSION [None]
